APPROVED DRUG PRODUCT: CHANTIX
Active Ingredient: VARENICLINE TARTRATE
Strength: EQ 0.5MG BASE **Federal Register determination that product was not discontinued or withdrawn for safety or effectiveness reasons**
Dosage Form/Route: TABLET;ORAL
Application: N021928 | Product #001 | TE Code: AB
Applicant: PF PRISM CV
Approved: May 10, 2006 | RLD: Yes | RS: No | Type: RX